FAERS Safety Report 23194037 (Version 1)
Quarter: 2023Q4

REPORT INFORMATION
  Report Type: Spontaneous
  Country: US (occurrence: US)
  Receive Date: 20231117
  Receipt Date: 20231117
  Transmission Date: 20240110
  Serious: No
  Sender: FDA-Public Use
  Company Number: US-BRISTOL-MYERS SQUIBB COMPANY-2023-165881

PATIENT
  Age: 73 Year
  Sex: Male

DRUGS (1)
  1. REVLIMID [Suspect]
     Active Substance: LENALIDOMIDE
     Indication: Product used for unknown indication
     Dosage: 15MG PILL, ONE PILL EVERY OTHER DAY FOR 3 WEEKS ON AND 7 DAYS OFF, IT^S 28-DAY CYCLE.

REACTIONS (2)
  - Platelet count decreased [Recovered/Resolved]
  - Off label use [Unknown]
